FAERS Safety Report 9244619 (Version 2)
Quarter: 2013Q3

REPORT INFORMATION
  Report Type: Spontaneous
  Country: BR (occurrence: BR)
  Receive Date: 20130422
  Receipt Date: 20130705
  Transmission Date: 20140515
  Serious: Yes (Other)
  Sender: FDA-Public Use
  Company Number: BR-SANOFI-AVENTIS-2013SA037438

PATIENT
  Age: 59 Year
  Sex: Female
  Weight: 63 kg

DRUGS (6)
  1. LANTUS [Suspect]
     Indication: TYPE 1 DIABETES MELLITUS
     Route: 065
     Dates: start: 1997
  2. AUTOPEN 24 [Suspect]
     Indication: DEVICE THERAPY
  3. HUMALOG [Concomitant]
     Indication: TYPE 1 DIABETES MELLITUS
     Dosage: ACCORDING TO GLYCEMIA
     Route: 058
     Dates: start: 1997
  4. ATENOLOL [Concomitant]
     Indication: MITRAL VALVE PROLAPSE
     Dosage: STARTED ABOUT 30 YEARS AGO
     Route: 048
     Dates: start: 1983
  5. ROSUVASTATIN CALCIUM [Concomitant]
     Indication: BLOOD CHOLESTEROL
     Route: 048
     Dates: start: 2009
  6. SYNTHROID [Concomitant]
     Indication: HYPOTHYROIDISM
     Dosage: STARTED ABOUT 16 YEARS AGO
     Route: 048
     Dates: start: 1997

REACTIONS (8)
  - Intervertebral disc protrusion [Unknown]
  - Hypoglycaemia [Unknown]
  - Hyperhidrosis [Unknown]
  - Coordination abnormal [Unknown]
  - Dizziness [Unknown]
  - Hyperglycaemia [Unknown]
  - Headache [Unknown]
  - Musculoskeletal stiffness [Unknown]
